FAERS Safety Report 18202961 (Version 3)
Quarter: 2020Q4

REPORT INFORMATION
  Report Type: Spontaneous
  Country: EG (occurrence: EG)
  Receive Date: 20200827
  Receipt Date: 20201130
  Transmission Date: 20210113
  Serious: Yes (Hospitalization, Other)
  Sender: FDA-Public Use
  Company Number: EG-JNJFOC-20200827988

PATIENT
  Sex: Female

DRUGS (2)
  1. STELARA [Suspect]
     Active Substance: USTEKINUMAB
     Route: 058
  2. STELARA [Suspect]
     Active Substance: USTEKINUMAB
     Indication: COLITIS ULCERATIVE
     Dosage: MORE THAN ONE YEAR AGO
     Route: 042

REACTIONS (8)
  - Myositis [Recovered/Resolved]
  - Hallucination, visual [Recovered/Resolved]
  - Ileus [Recovered/Resolved]
  - Myopathy [Recovered/Resolved]
  - Dizziness [Recovering/Resolving]
  - Amnesia [Recovered/Resolved]
  - Fatigue [Recovering/Resolving]
  - Loss of consciousness [Recovered/Resolved]

NARRATIVE: CASE EVENT DATE: 2020
